FAERS Safety Report 11400165 (Version 1)
Quarter: 2015Q3

REPORT INFORMATION
  Report Type: Spontaneous
  Country: US (occurrence: US)
  Receive Date: 20150820
  Receipt Date: 20150820
  Transmission Date: 20151125
  Serious: No
  Sender: FDA-Public Use
  Company Number: US-GLAXOSMITHKLINE-US2015118048

PATIENT
  Sex: Female

DRUGS (1)
  1. NICODERM CQ [Suspect]
     Active Substance: NICOTINE
     Indication: SMOKING CESSATION THERAPY
     Dosage: 14 MG, UNK

REACTIONS (8)
  - Nightmare [Unknown]
  - Application site paraesthesia [Unknown]
  - Rubber sensitivity [Unknown]
  - Dyspnoea [Unknown]
  - Application site rash [Unknown]
  - Nicotine dependence [Unknown]
  - Palpitations [Unknown]
  - Application site erythema [Unknown]
